FAERS Safety Report 8698703 (Version 2)
Quarter: 2013Q1

REPORT INFORMATION
  Report Type: Report from Study
  Country: DE (occurrence: DE)
  Receive Date: 20120802
  Receipt Date: 20130212
  Transmission Date: 20140127
  Serious: Yes (Death, Hospitalization, Other)
  Sender: FDA-Public Use
  Company Number: PHHO2012DE010583

PATIENT
  Age: 57 Year
  Sex: Male
  Weight: 100 kg

DRUGS (4)
  1. DEXAMETHASONE [Suspect]
     Indication: CONFUSIONAL STATE
  2. INVESTIGATIONAL DRUG [Suspect]
     Indication: NEOPLASM
     Dosage: 125 MG, UNK
     Route: 048
     Dates: start: 20120508, end: 20120703
  3. MORPHINE [Concomitant]
     Indication: SEDATION
  4. DIAZEPAM [Concomitant]
     Indication: SEDATION

REACTIONS (2)
  - Confusional state [Recovered/Resolved]
  - Disease progression [Fatal]
